FAERS Safety Report 25927644 (Version 1)
Quarter: 2025Q4

REPORT INFORMATION
  Report Type: Spontaneous
  Country: RU (occurrence: RU)
  Receive Date: 20251016
  Receipt Date: 20251016
  Transmission Date: 20260118
  Serious: Yes (Other)
  Sender: BIOGEN
  Company Number: RU-BIOGEN-2025BI01326989

PATIENT
  Age: 37 Year
  Sex: Male
  Weight: 80 kg

DRUGS (1)
  1. PLEGRIDY [Suspect]
     Active Substance: PEGINTERFERON BETA-1A
     Indication: Multiple sclerosis
     Dosage: SINGLE DOSE: 125MCG/KG
     Route: 050
     Dates: start: 20241110, end: 20251008

REACTIONS (2)
  - Injection site erythema [Recovered/Resolved]
  - Injection site induration [Recovered/Resolved]

NARRATIVE: CASE EVENT DATE: 20250809
